FAERS Safety Report 7679371-9 (Version None)
Quarter: 2011Q3

REPORT INFORMATION
  Report Type: 
  Country: None (occurrence: None)
  Receive Date: 20110812
  Receipt Date: 20110801
  Transmission Date: 20111222
  Serious: Yes (Hospitalization)
  Sender: FDA-Public Use
  Company Number: US-JNJFOC-20060203177

PATIENT
  Sex: Male
  Weight: 52 kg

DRUGS (11)
  1. PREVACID [Concomitant]
  2. MESALAMINE [Concomitant]
     Route: 048
  3. AMPICILLIN SODIUM [Concomitant]
     Route: 042
  4. CIPROFLOXACIN [Concomitant]
  5. INFLIXIMAB [Suspect]
     Route: 042
     Dates: start: 20050615
  6. INFLIXIMAB [Suspect]
     Indication: ANORECTAL DISORDER
     Route: 042
     Dates: start: 20040226
  7. AZATHIOPRINE [Concomitant]
  8. CULTURELLE [Concomitant]
  9. METRONIDAZOLE [Concomitant]
     Route: 042
  10. AZATHIOPRINE [Concomitant]
  11. GENTAMYCIN SULFATE [Concomitant]
     Route: 042

REACTIONS (4)
  - CELLULITIS [None]
  - CROHN'S DISEASE [None]
  - MALNUTRITION [None]
  - ABDOMINAL ABSCESS [None]
